FAERS Safety Report 9166222 (Version 2)
Quarter: 2013Q1

REPORT INFORMATION
  Report Type: Report from Study
  Country: CA (occurrence: CA)
  Receive Date: 20130315
  Receipt Date: 20130326
  Transmission Date: 20140127
  Serious: Yes (Hospitalization, Other)
  Sender: FDA-Public Use
  Company Number: CA-BRISTOL-MYERS SQUIBB COMPANY-17029265

PATIENT
  Age: 69 Year
  Sex: Female
  Weight: 61 kg

DRUGS (10)
  1. ORENCIA [Suspect]
     Indication: RHEUMATOID ARTHRITIS
     Dosage: LAST INF:5OCT12?NO OF INF:32
     Route: 042
     Dates: start: 20100330
  2. VITAMIN B12 [Concomitant]
  3. SYNTHROID [Concomitant]
  4. ASAPHEN [Concomitant]
  5. LYRICA [Concomitant]
  6. NAPROSYN [Concomitant]
  7. LIPITOR [Concomitant]
  8. AMLODIPINE [Concomitant]
  9. NEXIUM [Concomitant]
  10. NITRO [Concomitant]
     Route: 060

REACTIONS (4)
  - Guillain-Barre syndrome [Recovered/Resolved]
  - Nasopharyngitis [Not Recovered/Not Resolved]
  - Breast mass [Unknown]
  - Retracted nipple [Unknown]
